FAERS Safety Report 9330667 (Version 1)
Quarter: 2013Q2

REPORT INFORMATION
  Report Type: Spontaneous
  Country: US (occurrence: None)
  Receive Date: 20130604
  Receipt Date: 20130604
  Transmission Date: 20140414
  Serious: Yes (Hospitalization)
  Sender: FDA-Public Use
  Company Number: None

PATIENT
  Age: 67 Year
  Sex: Female
  Weight: 64 kg

DRUGS (2)
  1. BEVACIZUMAB (RHUMAB VEGF) (704865) [Suspect]
     Dates: end: 20130523
  2. PEMETREXED [Suspect]
     Dates: end: 20130523

REACTIONS (1)
  - Tachycardia [None]
